FAERS Safety Report 7509700-8 (Version None)
Quarter: 2011Q2

REPORT INFORMATION
  Report Type: 
  Country: None (occurrence: None)
  Receive Date: 20110527
  Receipt Date: 20110524
  Transmission Date: 20111010
  Serious: Yes (Other)
  Sender: FDA-Public Use
  Company Number: US-MERCK-1105USA03663

PATIENT
  Sex: Female

DRUGS (2)
  1. JANUVIA [Suspect]
     Indication: DIABETES MELLITUS
     Route: 048
     Dates: start: 20110518, end: 20110524
  2. JANUVIA [Suspect]
     Indication: BLOOD GLUCOSE
     Route: 048
     Dates: start: 20110518, end: 20110524

REACTIONS (3)
  - VISUAL ACUITY REDUCED [None]
  - HYPOGLYCAEMIA [None]
  - OPHTHALMOLOGICAL EXAMINATION ABNORMAL [None]
